FAERS Safety Report 10203138 (Version 1)
Quarter: 2014Q2

REPORT INFORMATION
  Report Type: Spontaneous
  Country: CN (occurrence: CN)
  Receive Date: 20140529
  Receipt Date: 20140529
  Transmission Date: 20141212
  Serious: Yes (Hospitalization, Other)
  Sender: FDA-Public Use
  Company Number: CN-009507513-1405CHN011737

PATIENT
  Age: 61 Year
  Sex: Male

DRUGS (1)
  1. DIPROSPAN [Suspect]
     Indication: ECZEMA
     Dosage: 1ML
     Route: 030
     Dates: start: 20140520

REACTIONS (6)
  - Shock [Unknown]
  - Flushing [Unknown]
  - Rash generalised [Recovered/Resolved]
  - Syncope [Unknown]
  - Urticaria [Recovered/Resolved]
  - Muscle twitching [Unknown]
